FAERS Safety Report 8571631-2 (Version None)
Quarter: 2012Q3

REPORT INFORMATION
  Report Type: 
  Country: None (occurrence: None)
  Receive Date: 20120806
  Receipt Date: 20120725
  Transmission Date: 20120928
  Serious: Yes (Hospitalization)
  Sender: FDA-Public Use
  Company Number: US-BAYER-2012-022231

PATIENT
  Age: 28 Year
  Sex: Female
  Weight: 84.807 kg

DRUGS (3)
  1. YAZ [Suspect]
     Dosage: UNK
     Route: 048
     Dates: start: 20100127, end: 20100321
  2. ATIVAN [Concomitant]
  3. PERCOCET [Concomitant]
     Indication: PAIN
     Dosage: UNK

REACTIONS (11)
  - ANXIETY [None]
  - PLEURAL EFFUSION [None]
  - DYSPNOEA [None]
  - EMOTIONAL DISTRESS [None]
  - INJURY [None]
  - PULMONARY INFARCTION [None]
  - PAIN [None]
  - PULMONARY EMBOLISM [None]
  - PULMONARY HYPERTENSION [None]
  - GENERAL PHYSICAL HEALTH DETERIORATION [None]
  - PLEURITIC PAIN [None]
